FAERS Safety Report 17829712 (Version 5)
Quarter: 2022Q3

REPORT INFORMATION
  Report Type: Report from Study
  Country: US (occurrence: US)
  Receive Date: 20200527
  Receipt Date: 20220713
  Transmission Date: 20221026
  Serious: Yes (Other)
  Sender: FDA-Public Use
  Company Number: US-SHIRE-US202012387

PATIENT
  Sex: Female

DRUGS (7)
  1. HUMAN IMMUNOGLOBULIN G [Suspect]
     Active Substance: HUMAN IMMUNOGLOBULIN G
     Indication: Primary immunodeficiency syndrome
     Dosage: 12 GRAM, 1/WEEK
     Route: 065
  2. HUMAN IMMUNOGLOBULIN G [Suspect]
     Active Substance: HUMAN IMMUNOGLOBULIN G
     Indication: Selective IgG subclass deficiency
  3. HUMAN IMMUNOGLOBULIN G [Suspect]
     Active Substance: HUMAN IMMUNOGLOBULIN G
     Indication: Selective IgG subclass deficiency
     Dosage: UNK
     Route: 042
  4. VITAMIN D [Concomitant]
     Active Substance: VITAMIN D NOS
     Dosage: UNK, QD
  5. VITAMIN C [Concomitant]
     Active Substance: ASCORBIC ACID
     Dosage: UNK, QD
  6. ZINC [Concomitant]
     Active Substance: ZINC
     Dosage: UNK, QD
  7. QUERCETIN [Concomitant]
     Active Substance: QUERCETIN
     Dosage: UNK, QD

REACTIONS (8)
  - Diverticulitis [Unknown]
  - Venous injury [Unknown]
  - Tooth disorder [Unknown]
  - Nasal discomfort [Unknown]
  - Malaise [Unknown]
  - Tremor [Unknown]
  - Dizziness [Unknown]
  - Meniscus injury [Unknown]
